FAERS Safety Report 20962349 (Version 1)
Quarter: 2022Q2

REPORT INFORMATION
  Report Type: Spontaneous
  Country: CA (occurrence: CA)
  Receive Date: 20220615
  Receipt Date: 20220615
  Transmission Date: 20220721
  Serious: Yes (Other)
  Sender: FDA-Public Use
  Company Number: CA-AMGEN-CANSP2022067143

PATIENT
  Age: 59 Year
  Sex: Female

DRUGS (19)
  1. XGEVA [Suspect]
     Active Substance: DENOSUMAB
     Indication: Prophylaxis
     Dosage: UNK
     Route: 042
     Dates: start: 20220309
  2. SACITUZUMAB GOVITECAN [Suspect]
     Active Substance: SACITUZUMAB GOVITECAN
     Indication: Triple negative breast cancer
     Dosage: 600 MILLIGRAM ON CYCLE 1 DAY 1 AND DAY 8
     Route: 042
     Dates: start: 20220217, end: 20220224
  3. SACITUZUMAB GOVITECAN [Suspect]
     Active Substance: SACITUZUMAB GOVITECAN
     Dosage: 600 MILLIGRAM ON CYCLE 2 DAY 1
     Route: 042
     Dates: start: 20220311
  4. SACITUZUMAB GOVITECAN [Suspect]
     Active Substance: SACITUZUMAB GOVITECAN
     Dosage: 581 UNK
     Route: 065
  5. TYLENOL [Concomitant]
     Active Substance: ACETAMINOPHEN
     Dosage: UNK
  6. BENADRYL ALLERGY + COLD [Concomitant]
  7. FAMOTIDINE [Concomitant]
     Active Substance: FAMOTIDINE
  8. AKYNZEO (NETUPITANT\PALONOSETRON) [Concomitant]
     Active Substance: NETUPITANT\PALONOSETRON
  9. DEXAMETHASONE [Concomitant]
     Active Substance: DEXAMETHASONE
  10. TAMOXIFEN [Concomitant]
     Active Substance: TAMOXIFEN
  11. ANASTROZOLE [Concomitant]
     Active Substance: ANASTROZOLE
  12. CAPECITABINE [Concomitant]
     Active Substance: CAPECITABINE
  13. CARBOPLATIN\GEMCITABINE [Concomitant]
     Active Substance: CARBOPLATIN\GEMCITABINE
  14. ADRIAMYCIN [Concomitant]
     Active Substance: DOXORUBICIN HYDROCHLORIDE
  15. CYCLOPHOSPHAMIDE [Concomitant]
     Active Substance: CYCLOPHOSPHAMIDE
  16. TAXOL [Concomitant]
     Active Substance: PACLITAXEL
  17. FILGRASTIM [Concomitant]
     Active Substance: FILGRASTIM
  18. ANASTROZOLE [Concomitant]
     Active Substance: ANASTROZOLE
  19. COVID-19 VACCINE [Concomitant]

REACTIONS (26)
  - Breast cancer metastatic [Not Recovered/Not Resolved]
  - Neutrophil count abnormal [Unknown]
  - Gastrooesophageal reflux disease [Unknown]
  - Abdominal pain upper [Unknown]
  - Abdominal discomfort [Unknown]
  - Muscle atrophy [Unknown]
  - Hypertension [Recovered/Resolved]
  - Pain [Recovered/Resolved]
  - Candida infection [Unknown]
  - Weight increased [Unknown]
  - Pain of skin [Not Recovered/Not Resolved]
  - Throat irritation [Unknown]
  - Neuralgia [Unknown]
  - Headache [Unknown]
  - Fatigue [Unknown]
  - Pain in extremity [Unknown]
  - Cough [Unknown]
  - Constipation [Unknown]
  - Alopecia [Not Recovered/Not Resolved]
  - Bone pain [Unknown]
  - Diarrhoea [Recovered/Resolved]
  - Pain of skin [Unknown]
  - Limb discomfort [Unknown]
  - Weight increased [Unknown]
  - Weight decreased [Unknown]
  - Liver function test increased [Unknown]

NARRATIVE: CASE EVENT DATE: 20220311
